FAERS Safety Report 24426041 (Version 2)
Quarter: 2024Q4

REPORT INFORMATION
  Report Type: Spontaneous
  Country: US (occurrence: US)
  Receive Date: 20241011
  Receipt Date: 20241017
  Transmission Date: 20250115
  Serious: Yes (Other)
  Sender: ELI LILLY AND COMPANY
  Company Number: US-ELI_LILLY_AND_COMPANY-US202410007539

PATIENT
  Age: 80 Year
  Sex: Male
  Weight: 72.109 kg

DRUGS (1)
  1. ADCIRCA [Suspect]
     Active Substance: TADALAFIL
     Indication: Pulmonary arterial hypertension
     Dosage: 40 MG, DAILY
     Route: 048
     Dates: start: 202104

REACTIONS (5)
  - Bendopnoea [Unknown]
  - Weight decreased [Unknown]
  - Weight fluctuation [Unknown]
  - Dizziness [Unknown]
  - Dyspnoea exertional [Unknown]
